FAERS Safety Report 5381716-X (Version None)
Quarter: 2007Q2

REPORT INFORMATION
  Report Type: 
  Country: None (occurrence: None)
  Receive Date: 20070629
  Receipt Date: 20070327
  Transmission Date: 20071010
  Serious: Yes (Hospitalization)
  Sender: FDA-Public Use
  Company Number: US200703005742

PATIENT
  Sex: Female

DRUGS (3)
  1. HUMALOG [Suspect]
     Dates: start: 20000101
  2. HUMULIN N [Suspect]
  3. HUMULIN R [Suspect]
     Dates: end: 20000101

REACTIONS (4)
  - BLOOD GLUCOSE INCREASED [None]
  - DRUG INEFFECTIVE [None]
  - FEELING ABNORMAL [None]
  - SURGERY [None]
